FAERS Safety Report 25636808 (Version 2)
Quarter: 2025Q3

REPORT INFORMATION
  Report Type: Spontaneous
  Country: US (occurrence: US)
  Receive Date: 20250804
  Receipt Date: 20250923
  Transmission Date: 20251020
  Serious: Yes (Other)
  Sender: BRISTOL-MYERS SQUIBB COMPANY
  Company Number: US-BRISTOL-MYERS SQUIBB COMPANY-2025-107437

PATIENT
  Age: 71 Year
  Sex: Male

DRUGS (3)
  1. POMALYST [Suspect]
     Active Substance: POMALIDOMIDE
     Indication: Product used for unknown indication
     Dosage: DAILY ON DAYS 1-21 OF 28-DAY CYCLE
  2. POMALYST [Suspect]
     Active Substance: POMALIDOMIDE
  3. BRILINTA [Suspect]
     Active Substance: TICAGRELOR
     Indication: Product used for unknown indication

REACTIONS (5)
  - Haemorrhagic diathesis [Unknown]
  - Fatigue [Unknown]
  - Insomnia [Unknown]
  - Hallucination [Unknown]
  - Thrombosis [Unknown]
